FAERS Safety Report 23598171 (Version 1)
Quarter: 2024Q1

REPORT INFORMATION
  Report Type: Spontaneous
  Country: JP (occurrence: JP)
  Receive Date: 20240305
  Receipt Date: 20240305
  Transmission Date: 20240410
  Serious: Yes (Other)
  Sender: FDA-Public Use
  Company Number: JP-SAKK-01961808

PATIENT

DRUGS (3)
  1. SARCLISA [Suspect]
     Active Substance: ISATUXIMAB\ISATUXIMAB-IRFC
     Indication: Product used for unknown indication
     Route: 041
  2. KYPROLIS [Concomitant]
     Active Substance: CARFILZOMIB
     Indication: Product used for unknown indication
     Route: 065
  3. DEXAMETHASONE SODIUM PHOSPHATE [Concomitant]
     Active Substance: DEXAMETHASONE PHOSPHATE\DEXAMETHASONE SODIUM PHOSPHATE
     Indication: Product used for unknown indication
     Route: 065

REACTIONS (1)
  - Renal impairment [Unknown]
